FAERS Safety Report 8619967-0 (Version None)
Quarter: 2012Q3

REPORT INFORMATION
  Report Type: 
  Country: None (occurrence: None)
  Receive Date: 20120824
  Receipt Date: 20120814
  Transmission Date: 20120928
  Serious: Yes (Hospitalization)
  Sender: FDA-Public Use
  Company Number: US-ELI_LILLY_AND_COMPANY-US201204007865

PATIENT
  Sex: Male
  Weight: 79.728 kg

DRUGS (2)
  1. ZYPREXA RELPREVV [Suspect]
     Dosage: 300 MG, 2/W
     Route: 030
     Dates: start: 20120724
  2. ZYPREXA RELPREVV [Suspect]
     Indication: SCHIZOPHRENIA
     Dosage: 405 MG, MONTHLY (1/M)
     Route: 030
     Dates: start: 20120221

REACTIONS (3)
  - SCHIZOPHRENIA [None]
  - AGGRESSION [None]
  - AGITATION [None]
